FAERS Safety Report 10343255 (Version 1)
Quarter: 2014Q3

REPORT INFORMATION
  Report Type: Spontaneous
  Country: BR (occurrence: BR)
  Receive Date: 20140725
  Receipt Date: 20140725
  Transmission Date: 20150326
  Serious: Yes (Other)
  Sender: FDA-Public Use
  Company Number: ALCN2014BR004296

PATIENT

DRUGS (1)
  1. VIGAMOX [Suspect]
     Active Substance: MOXIFLOXACIN HYDROCHLORIDE
     Indication: POSTOPERATIVE CARE
     Dosage: UNK
     Route: 047

REACTIONS (5)
  - Visual acuity reduced [Unknown]
  - Off label use [Unknown]
  - Retinal detachment [Unknown]
  - Wrong drug administered [Unknown]
  - Drug dispensing error [Unknown]
